FAERS Safety Report 5873935-0 (Version None)
Quarter: 2008Q3

REPORT INFORMATION
  Report Type: 
  Country: None (occurrence: None)
  Receive Date: 20080905
  Receipt Date: 20080905
  Transmission Date: 20090109
  Serious: No
  Sender: FDA-Public Use
  Company Number: None

PATIENT
  Sex: Female

DRUGS (1)
  1. RISPERIDONE [Suspect]
     Dosage: 1MG HS PO
     Route: 048
     Dates: start: 20080822, end: 20080826

REACTIONS (1)
  - GALACTORRHOEA [None]
